FAERS Safety Report 9770444 (Version 1)
Quarter: 2013Q4

REPORT INFORMATION
  Report Type: Spontaneous
  Country: US (occurrence: US)
  Receive Date: 20131218
  Receipt Date: 20131218
  Transmission Date: 20140711
  Serious: No
  Sender: FDA-Public Use
  Company Number: US-TEVA-450768USA

PATIENT
  Sex: Female
  Weight: 108.96 kg

DRUGS (11)
  1. NUVIGIL [Suspect]
     Indication: PRODUCT USED FOR UNKNOWN INDICATION
     Dosage: FROM 150MG DAILY TO 250 MG DAILY
     Route: 048
     Dates: start: 201306
  2. CRESTOR [Concomitant]
     Indication: HYPERCHOLESTEROLAEMIA
  3. NOVOLOG [Concomitant]
     Indication: DIABETES MELLITUS
  4. NEXIUM [Concomitant]
     Indication: GASTROOESOPHAGEAL REFLUX DISEASE
  5. LEVEMIR [Concomitant]
     Indication: DIABETES MELLITUS
  6. CARTIA XT [Concomitant]
     Indication: HYPERTENSION
  7. CLONIDINE [Concomitant]
     Indication: HYPERTENSION
  8. DIOVAN [Concomitant]
     Indication: HYPERTENSION
  9. CYMBALTA [Concomitant]
     Indication: NEUROPATHY PERIPHERAL
  10. HYDROCHLOROTHIAZIDE [Concomitant]
     Indication: HYPERTENSION
  11. ISOSORBIDE [Concomitant]
     Indication: HYPERTENSION

REACTIONS (1)
  - Drug effect delayed [Unknown]
